FAERS Safety Report 6180065-X (Version None)
Quarter: 2009Q2

REPORT INFORMATION
  Report Type: 
  Country: None (occurrence: None)
  Receive Date: 20090501
  Receipt Date: 20090421
  Transmission Date: 20091009
  Serious: Yes (Other)
  Sender: FDA-Public Use
  Company Number: 2009US001229

PATIENT
  Age: 33 Year
  Sex: Female

DRUGS (2)
  1. PROGRAF [Suspect]
     Indication: RENAL TRANSPLANT
     Dosage: 10 MG, UID/QD,; 8 MG, UID/QD,
  2. PREDNISONE TAB [Concomitant]

REACTIONS (3)
  - ARTERIAL DISORDER [None]
  - BLOOD CREATININE INCREASED [None]
  - THROMBOSIS [None]
